FAERS Safety Report 15222892 (Version 1)
Quarter: 2018Q3

REPORT INFORMATION
  Report Type: Report from Study
  Country: JP (occurrence: JP)
  Receive Date: 20180731
  Receipt Date: 20180731
  Transmission Date: 20181010
  Serious: Yes (Death, Hospitalization, Other)
  Sender: FDA-Public Use
  Company Number: PHHY2009JP15348

PATIENT
  Age: 72 Year
  Sex: Male
  Weight: 53 kg

DRUGS (13)
  1. PLATELETS [Concomitant]
     Active Substance: HUMAN PLATELET, ALLOGENIC
     Indication: PRODUCT USED FOR UNKNOWN INDICATION
     Dosage: 10 UNITS EVERY WEEK
     Route: 065
     Dates: start: 20081009, end: 20090316
  2. RED BLOOD CELLS, CONCENTRATED [Concomitant]
     Active Substance: HUMAN RED BLOOD CELL
     Indication: PRODUCT USED FOR UNKNOWN INDICATION
     Dosage: 2 UNTIS EVERY WEEK
     Route: 065
     Dates: start: 20081009, end: 20090317
  3. MEROPEN [Concomitant]
     Active Substance: MEROPENEM
     Indication: APLASTIC ANAEMIA
     Dosage: 1 G, UNK
     Route: 042
     Dates: start: 20090116, end: 20090202
  4. TAZOCIN [Concomitant]
     Active Substance: PIPERACILLIN SODIUM\TAZOBACTAM SODIUM
     Indication: APLASTIC ANAEMIA
     Dosage: 13.5 MG, UNK
     Route: 042
     Dates: start: 20090202, end: 20090220
  5. EXJADE [Suspect]
     Active Substance: DEFERASIROX
     Indication: HAEMOCHROMATOSIS
  6. EXJADE [Suspect]
     Active Substance: DEFERASIROX
     Indication: IRON OVERLOAD
     Dosage: 1000 MG, QD
     Route: 048
     Dates: start: 20081010
  7. PREDONINE [Concomitant]
     Active Substance: PREDNISOLONE
     Indication: APLASTIC ANAEMIA
     Dosage: 5 MG/DAY
     Route: 048
     Dates: start: 20081010, end: 20090310
  8. ALTAT [Concomitant]
     Active Substance: ROXATIDINE ACETATE HYDROCHLORIDE
     Indication: APLASTIC ANAEMIA
     Dosage: 150 MG, UNK
     Route: 048
     Dates: start: 20081010, end: 20090310
  9. MEROPEN [Concomitant]
     Active Substance: MEROPENEM
     Dosage: 1.5 G, UNK
     Route: 042
  10. HABEKACIN [Concomitant]
     Active Substance: ARBEKACIN
     Indication: APLASTIC ANAEMIA
     Dosage: 200 MG, UNK
     Route: 042
     Dates: start: 20090202, end: 20090213
  11. BACTRAMIN [Concomitant]
     Active Substance: SULFAMETHOXAZOLE\TRIMETHOPRIM
     Indication: APLASTIC ANAEMIA
     Dosage: 400 MG, UNK
     Route: 048
     Dates: start: 20081010, end: 20090310
  12. NITROPEN [Concomitant]
     Active Substance: NITROGLYCERIN
     Indication: APLASTIC ANAEMIA
     Dosage: 0.5 MG, UNK
     Route: 048
     Dates: start: 20081010, end: 20090310
  13. ISEPACIN [Concomitant]
     Indication: APLASTIC ANAEMIA
     Dosage: 400 MG, UNK
     Route: 042
     Dates: start: 20090127, end: 20090202

REACTIONS (9)
  - Disease progression [Fatal]
  - White blood cell count decreased [Fatal]
  - Pneumonia [Fatal]
  - Blood alkaline phosphatase increased [Unknown]
  - Aspartate aminotransferase increased [Unknown]
  - Alanine aminotransferase increased [Unknown]
  - Pyrexia [Fatal]
  - Diarrhoea [Recovered/Resolved]
  - Gamma-glutamyltransferase increased [Unknown]

NARRATIVE: CASE EVENT DATE: 20081017
